FAERS Safety Report 13086795 (Version 2)
Quarter: 2017Q1

REPORT INFORMATION
  Report Type: Spontaneous
  Country: IL (occurrence: IL)
  Receive Date: 20170104
  Receipt Date: 20170122
  Transmission Date: 20170428
  Serious: Yes (Hospitalization)
  Sender: FDA-Public Use
  Company Number: IL-ROCHE-1874108

PATIENT
  Age: 58 Year
  Sex: Male

DRUGS (5)
  1. DEXACORT (ISRAEL) [Concomitant]
  2. AVASTIN [Suspect]
     Active Substance: BEVACIZUMAB
     Indication: NON-SMALL CELL LUNG CANCER
     Dosage: TOTAL DOSE 1000 MG
     Route: 065
     Dates: start: 201507, end: 20161025
  3. CARBOPLATIN. [Concomitant]
     Active Substance: CARBOPLATIN
     Indication: NON-SMALL CELL LUNG CANCER
  4. ALIMTA [Concomitant]
     Active Substance: PEMETREXED DISODIUM
     Indication: NON-SMALL CELL LUNG CANCER
     Route: 065
     Dates: end: 20161025
  5. TRITACE [Concomitant]
     Active Substance: RAMIPRIL

REACTIONS (3)
  - Myocardial infarction [Unknown]
  - Back pain [Unknown]
  - Seizure [Unknown]

NARRATIVE: CASE EVENT DATE: 20161027
